FAERS Safety Report 5456011-0 (Version None)
Quarter: 2007Q3

REPORT INFORMATION
  Report Type: 
  Country: None (occurrence: None)
  Receive Date: 20070918
  Receipt Date: 20070228
  Transmission Date: 20080115
  Serious: Yes (Other)
  Sender: FDA-Public Use
  Company Number: US-ASTRAZENECA-2006UW23948

PATIENT
  Sex: Male
  Weight: 65 kg

DRUGS (5)
  1. SEROQUEL [Suspect]
     Indication: SCHIZOPHRENIA
     Route: 048
  2. SEROQUEL [Suspect]
     Indication: DEPRESSION
     Route: 048
  3. RISPERDAL [Concomitant]
     Dosage: 4 MG
  4. ZYPREXA [Concomitant]
     Dosage: 10 MG
  5. TRIAZOLAM [Concomitant]
     Dosage: 25 MG

REACTIONS (2)
  - DIABETES MELLITUS [None]
  - TARDIVE DYSKINESIA [None]
